FAERS Safety Report 4299171-X (Version None)
Quarter: 2004Q1

REPORT INFORMATION
  Report Type: 
  Country: None (occurrence: None)
  Receive Date: 20040217
  Receipt Date: 20040204
  Transmission Date: 20041129
  Serious: Yes (Death)
  Sender: FDA-Public Use
  Company Number: US-SHR-04-021023

PATIENT
  Age: 64 Year
  Sex: Male

DRUGS (2)
  1. BETASERON [Suspect]
     Indication: MULTIPLE SCLEROSIS
     Dosage: 8 MIU, EVERY 2D, SUBCUTANEOUS
     Route: 058
     Dates: start: 20020801, end: 20031230
  2. UNSPECIFIED BREATHING TREATMENTS [Concomitant]

REACTIONS (4)
  - CONDITION AGGRAVATED [None]
  - GASTROINTESTINAL ULCER [None]
  - PNEUMONIA [None]
  - RESPIRATORY DISTRESS [None]
